FAERS Safety Report 14991892 (Version 1)
Quarter: 2018Q2

REPORT INFORMATION
  Report Type: Report from Study
  Country: US (occurrence: US)
  Receive Date: 20180608
  Receipt Date: 20180608
  Transmission Date: 20180711
  Serious: Yes (Death)
  Sender: FDA-Public Use
  Company Number: US-ACTELION-A-US2017-150276

PATIENT
  Age: 59 Year
  Sex: Female
  Weight: 71.66 kg

DRUGS (4)
  1. OPSUMIT [Suspect]
     Active Substance: MACITENTAN
     Indication: PULMONARY HYPERTENSION
     Dosage: 10 MG, QD
     Route: 048
     Dates: start: 201702
  2. TYVASO [Concomitant]
     Active Substance: TREPROSTINIL
  3. AMLODIPINE [Concomitant]
     Active Substance: AMLODIPINE BESYLATE
  4. ADCIRCA [Concomitant]
     Active Substance: TADALAFIL
     Dosage: 40 MG, BID
     Dates: start: 201701

REACTIONS (13)
  - Neck pain [Unknown]
  - Vaginal discharge [Unknown]
  - Dyspnoea exertional [Unknown]
  - Death [Fatal]
  - Dyspnoea [Unknown]
  - Constipation [Unknown]
  - Palpitations [Unknown]
  - Oxygen consumption increased [Unknown]
  - Abdominal pain upper [Unknown]
  - Oedema [Recovering/Resolving]
  - Hypotension [Unknown]
  - Musculoskeletal stiffness [Unknown]
  - Dizziness [Unknown]

NARRATIVE: CASE EVENT DATE: 20180511
